FAERS Safety Report 4607693-4 (Version None)
Quarter: 2005Q1

REPORT INFORMATION
  Report Type: 
  Country: None (occurrence: None)
  Receive Date: 20050309
  Receipt Date: 20050222
  Transmission Date: 20050727
  Serious: Yes (Hospitalization, Other)
  Sender: FDA-Public Use
  Company Number: GBS050216748

PATIENT
  Age: 49 Year
  Sex: Male

DRUGS (3)
  1. HUMALOG-HUMAN INSULIN(RDNA):25% LISPRO, 75% NPL (LI [Suspect]
     Indication: DIABETES MELLITUS
     Dosage: 100 U DAY
     Dates: start: 20030201
  2. ENALAPRIL [Concomitant]
  3. IRBESARTAN [Concomitant]

REACTIONS (5)
  - INJECTION SITE PAIN [None]
  - INJECTION SITE SWELLING [None]
  - MEDICAL DEVICE COMPLICATION [None]
  - PHARMACEUTICAL PRODUCT COMPLAINT [None]
  - RENAL TRANSPLANT [None]
